FAERS Safety Report 9150739 (Version 1)
Quarter: 2013Q1

REPORT INFORMATION
  Report Type: Report from Study
  Country: FR (occurrence: FR)
  Receive Date: 20130308
  Receipt Date: 20130308
  Transmission Date: 20140127
  Serious: Yes (Hospitalization)
  Sender: FDA-Public Use
  Company Number: FR-ROCHE-1199822

PATIENT
  Age: 23 Year
  Sex: Female
  Weight: 75.5 kg

DRUGS (15)
  1. TOCILIZUMAB [Suspect]
     Indication: RHEUMATOID ARTHRITIS
     Route: 042
     Dates: start: 20100615
  2. TOCILIZUMAB [Suspect]
     Route: 042
     Dates: start: 20100709
  3. TOCILIZUMAB [Suspect]
     Route: 042
     Dates: start: 20110722
  4. TOCILIZUMAB [Suspect]
     Route: 042
     Dates: start: 20110819
  5. TOCILIZUMAB [Suspect]
     Route: 042
     Dates: start: 20120220
  6. METHOTREXATE [Concomitant]
     Route: 065
  7. METHOTREXATE [Concomitant]
     Route: 065
  8. KETOPROFENE [Concomitant]
     Route: 065
  9. PANTOPRAZOLE [Concomitant]
     Route: 065
  10. BI-PROFENID [Concomitant]
     Route: 065
  11. LUMIRELAX [Concomitant]
     Route: 065
  12. VOLTARENE (FRANCE) [Concomitant]
     Dosage: 75 LP
     Route: 065
  13. INIPOMP [Concomitant]
     Route: 065
  14. IXPRIM [Concomitant]
     Route: 065
  15. SPECIAFOLDINE [Concomitant]
     Route: 065

REACTIONS (1)
  - Endometriosis [Not Recovered/Not Resolved]
